FAERS Safety Report 8114704-0 (Version None)
Quarter: 2012Q1

REPORT INFORMATION
  Report Type: 
  Country: None (occurrence: None)
  Receive Date: 20120206
  Receipt Date: 20120201
  Transmission Date: 20120608
  Serious: Yes (Life-Threatening, Hospitalization, Other)
  Sender: FDA-Public Use
  Company Number: DE-PFIZER INC-2010115153

PATIENT
  Age: 57 Year
  Sex: Female
  Weight: 105 kg

DRUGS (9)
  1. METFORMIN [Concomitant]
     Dosage: 850 MG, 1X/DAY
     Route: 048
     Dates: start: 20080101, end: 20100529
  2. TRAMADOLOR ^HEXAL^ [Concomitant]
     Dosage: 100 MG, 3X/DAY
     Route: 048
     Dates: start: 20070801, end: 20100528
  3. GABAPENTIN [Concomitant]
     Indication: NEUROBORRELIOSIS
     Dosage: 600 MG, 4X/DAY
     Route: 048
     Dates: start: 20070101, end: 20100525
  4. RAMIPRIL [Suspect]
     Indication: HYPERTENSION
     Dosage: 2.5 MG, 1X/DAY
     Route: 048
     Dates: start: 20080101, end: 20100528
  5. DICLOFENAC [Suspect]
     Indication: SPINAL DISORDER
     Dosage: 75 MG, 2X/DAY
     Route: 048
     Dates: start: 20041101, end: 20100525
  6. RESTEX [Concomitant]
     Indication: RESTLESS LEGS SYNDROME
     Dosage: 1 DF = 100 MG LEVODOPA/ 25 MG BENSERAZIDE HCL
     Route: 048
     Dates: start: 20060101, end: 20100525
  7. RESTEX - SLOW RELEASE [Concomitant]
     Indication: RESTLESS LEGS SYNDROME
     Dosage: 1 DF = 100 MG LEVODOPA/ 25 MG BENSERAZIDE HCL
     Route: 048
     Dates: start: 20060101, end: 20100525
  8. METFORMIN [Concomitant]
     Indication: TYPE 2 DIABETES MELLITUS
     Dosage: 1000 MG, 1X/DAY
     Route: 048
     Dates: start: 20080101, end: 20100529
  9. FLUTICASONE PROPIONATE/SALMETEROL [Concomitant]
     Indication: ASTHMA
     Dosage: 25 UG SALMETEROL XINAFOATE/ 125 UG FLUTICASONE PROPIONATE, 2 PUFFS ONCE DAILY
     Route: 055
     Dates: start: 20050101, end: 20100525

REACTIONS (8)
  - BRADYCARDIA [None]
  - RESPIRATORY FAILURE [None]
  - WEIGHT INCREASED [None]
  - RENAL FAILURE ACUTE [None]
  - SEPTIC SHOCK [None]
  - HYPERKALAEMIA [None]
  - DYSPNOEA [None]
  - OEDEMA [None]
